FAERS Safety Report 6222107-9 (Version None)
Quarter: 2009Q2

REPORT INFORMATION
  Report Type: 
  Country: None (occurrence: None)
  Receive Date: 20090611
  Receipt Date: 20090527
  Transmission Date: 20091009
  Serious: Yes (Hospitalization)
  Sender: FDA-Public Use
  Company Number: FR-ELI_LILLY_AND_COMPANY-FR200812003019

PATIENT
  Age: 84 Year
  Sex: Female
  Weight: 150 kg

DRUGS (6)
  1. FORTEO [Suspect]
     Indication: OSTEOPOROSIS
     Dosage: 20 UG, DAILY (1/D)
     Route: 058
     Dates: start: 20080929
  2. FORTEO [Suspect]
     Dosage: 20 UG, DAILY (1/D)
     Route: 065
     Dates: start: 20090314
  3. UVEDOSE [Concomitant]
     Indication: VITAMIN D DEFICIENCY
     Dosage: UNK, UNKNOWN
     Route: 065
  4. KARDEGIC [Concomitant]
     Indication: HYPERTENSION
     Dosage: UNK, UNKNOWN
     Route: 065
  5. CORDARONE [Concomitant]
     Indication: CORONARY ARTERY INSUFFICIENCY
     Dosage: UNK, UNKNOWN
     Route: 065
  6. FLUDEX [Concomitant]
     Indication: CORONARY ARTERY INSUFFICIENCY
     Dosage: UNK, UNKNOWN
     Route: 065

REACTIONS (1)
  - AORTIC VALVE STENOSIS [None]
